FAERS Safety Report 19814070 (Version 1)
Quarter: 2021Q3

REPORT INFORMATION
  Report Type: Spontaneous
  Country: JP (occurrence: JP)
  Receive Date: 20210910
  Receipt Date: 20210910
  Transmission Date: 20211014
  Serious: Yes (Hospitalization)
  Sender: FDA-Public Use
  Company Number: JP-JOURNEY MEDICAL CORPORATION-2021JNY00030

PATIENT
  Age: 55 Year
  Sex: Male

DRUGS (1)
  1. MINOCYCLINE HYDROCHLORIDE. [Suspect]
     Active Substance: MINOCYCLINE HYDROCHLORIDE
     Indication: PNEUMONIA MYCOPLASMAL
     Dosage: 100 MG, 2X/DAY (EVERY 12 HOURS FOR GREATER THAN OR EQUAL TO 60 MINUTES)
     Route: 042

REACTIONS (4)
  - Thrombosis [Recovered/Resolved]
  - Pulmonary embolism [Recovered/Resolved]
  - Splenic infarction [Recovered/Resolved]
  - Paradoxical embolism [Recovered/Resolved]
